FAERS Safety Report 4587107-3 (Version None)
Quarter: 2005Q1

REPORT INFORMATION
  Report Type: 
  Country: None (occurrence: None)
  Receive Date: 20050218
  Receipt Date: 20050202
  Transmission Date: 20050727
  Serious: Yes (Hospitalization)
  Sender: FDA-Public Use
  Company Number: PHBS2005ES01794

PATIENT
  Age: 68 Year
  Sex: Male

DRUGS (4)
  1. STALEVO 100 [Suspect]
     Indication: PARKINSON'S DISEASE
     Dosage: 100 MG, Q8H
     Route: 065
     Dates: start: 20041027
  2. STALEVO 100 [Suspect]
     Dosage: 50 MG, Q8H
     Route: 065
     Dates: start: 20041123
  3. LEVODOPA [Concomitant]
     Dosage: 375 MG/D
     Route: 065
  4. DECAPEPTYL [Concomitant]
     Route: 065

REACTIONS (6)
  - ANAPHYLACTIC SHOCK [None]
  - BLOOD PRESSURE SYSTOLIC DECREASED [None]
  - HYPERHIDROSIS [None]
  - HYPOTENSION [None]
  - LOSS OF CONSCIOUSNESS [None]
  - PALLOR [None]
